FAERS Safety Report 5140390-8 (Version None)
Quarter: 2006Q4

REPORT INFORMATION
  Report Type: 
  Country: None (occurrence: None)
  Receive Date: 20061031
  Receipt Date: 20061011
  Transmission Date: 20070319
  Serious: Yes (Hospitalization, Other)
  Sender: FDA-Public Use
  Company Number: US-ELI_LILLY_AND_COMPANY-US200610002115

PATIENT
  Age: 79 Year
  Sex: Female
  Weight: 48.526 kg

DRUGS (10)
  1. FORTEO [Suspect]
     Indication: OSTEOPOROSIS
     Dosage: UNK, UNK
     Dates: start: 20050421, end: 20060610
  2. EVISTA [Suspect]
  3. FUROSEMIDE [Concomitant]
     Dosage: 40 MG, UNK
  4. DETROL [Concomitant]
     Dosage: 4 MG, UNK
  5. DIOVAN HCT [Concomitant]
  6. COUMADIN [Concomitant]
     Dosage: 5 MG, UNK
  7. LIPITOR [Concomitant]
     Dosage: 10 MG, UNK
  8. ATENOLOL [Concomitant]
     Dosage: 50 MG, UNK
  9. K-TAB [Concomitant]
  10. MULTI-VITAMIN [Concomitant]

REACTIONS (2)
  - DRUG INEFFECTIVE [None]
  - HAEMORRHAGIC STROKE [None]
